FAERS Safety Report 7411300-5 (Version None)
Quarter: 2011Q2

REPORT INFORMATION
  Report Type: 
  Country: None (occurrence: None)
  Receive Date: 20110413
  Receipt Date: 20100603
  Transmission Date: 20111010
  Serious: No
  Sender: FDA-Public Use
  Company Number: US-BRISTOL-MYERS SQUIBB COMPANY-15133705

PATIENT
  Age: 80 Year
  Sex: Female
  Weight: 52 kg

DRUGS (5)
  1. NEXIUM [Concomitant]
  2. IMODIUM [Concomitant]
  3. ERBITUX [Suspect]
     Indication: COLORECTAL CANCER METASTATIC
     Dosage: RECENT INFUSION ON 02JUN10.
  4. MAGNESIUM [Concomitant]
  5. VITAMIN B [Concomitant]

REACTIONS (3)
  - RASH PRURITIC [None]
  - NAIL BED INFLAMMATION [None]
  - ALOPECIA [None]
